FAERS Safety Report 19869560 (Version 1)
Quarter: 2021Q3

REPORT INFORMATION
  Report Type: Report from Study
  Country: US (occurrence: US)
  Receive Date: 20210922
  Receipt Date: 20210922
  Transmission Date: 20211014
  Serious: Yes (Other)
  Sender: FDA-Public Use
  Company Number: US-UCBSA-2021035100

PATIENT
  Age: 79 Year
  Sex: Male

DRUGS (2)
  1. LACOSAMIDE. [Suspect]
     Active Substance: LACOSAMIDE
     Dosage: 100MG 1 TABLET EVERY NIGHT
  2. LACOSAMIDE. [Suspect]
     Active Substance: LACOSAMIDE
     Indication: SEIZURE
     Dosage: 50MG? 1 TAB AM AND 100MG?1 TABLET

REACTIONS (5)
  - Therapy interrupted [Unknown]
  - Product use issue [Unknown]
  - Seizure [Not Recovered/Not Resolved]
  - Product availability issue [Unknown]
  - Urinary tract infection [Not Recovered/Not Resolved]

NARRATIVE: CASE EVENT DATE: 20210709
